FAERS Safety Report 8314254-2 (Version None)
Quarter: 2012Q2

REPORT INFORMATION
  Report Type: 
  Country: None (occurrence: None)
  Receive Date: 20120426
  Receipt Date: 20120419
  Transmission Date: 20120825
  Serious: Yes (Hospitalization)
  Sender: FDA-Public Use
  Company Number: PHHO2012FR003755

PATIENT
  Sex: Female

DRUGS (5)
  1. METHOTREXATE [Suspect]
     Indication: BONE SARCOMA
     Dosage: 20.75 G, UNK
     Dates: start: 20111026
  2. NO TREATMENT RECEIVED [Suspect]
     Indication: BONE SARCOMA
     Dosage: NO TREATMENT RECEIVED
  3. IFOSFAMIDE [Suspect]
     Dosage: 6.05 G, UNK
     Dates: start: 20111223
  4. ETOPOSIDE [Suspect]
     Indication: BONE SARCOMA
     Dosage: 520 MG, UNK
     Dates: start: 20111116
  5. IFOSFAMIDE [Suspect]
     Indication: BONE SARCOMA
     Dosage: 12.1 G, UNK
     Dates: start: 20111116, end: 20111221

REACTIONS (2)
  - FEMUR FRACTURE [None]
  - ENCEPHALOPATHY [None]
